FAERS Safety Report 18373266 (Version 9)
Quarter: 2022Q1

REPORT INFORMATION
  Report Type: Spontaneous
  Country: PL (occurrence: PL)
  Receive Date: 20201012
  Receipt Date: 20220107
  Transmission Date: 20220423
  Serious: Yes (Hospitalization, Other)
  Sender: FDA-Public Use
  Company Number: NVSC2020PL261550

PATIENT
  Age: 79 Year
  Sex: Female

DRUGS (12)
  1. BISOPROLOL FUMARATE [Suspect]
     Active Substance: BISOPROLOL FUMARATE
     Indication: Product used for unknown indication
     Dosage: 5 MG, Q12H (10 MG DAILY)
     Route: 065
  2. ROSUVASTATIN [Suspect]
     Active Substance: ROSUVASTATIN
     Indication: Product used for unknown indication
     Dosage: 20 MG, QD (1 TAB IN THE EVENING)
     Route: 048
  3. RAMIPRIL [Suspect]
     Active Substance: RAMIPRIL
     Indication: Product used for unknown indication
     Dosage: 5 MG, QD (1 TABLET IN THE MORNING)
     Route: 048
  4. RAMIPRIL [Suspect]
     Active Substance: RAMIPRIL
     Dosage: 1 DF, QD (1 TABLET IN THE MORNING)
     Route: 065
  5. TORSEMIDE [Suspect]
     Active Substance: TORSEMIDE
     Indication: Product used for unknown indication
     Dosage: 10 MG, QD (1 TABLET IN MORNING)
     Route: 048
  6. TORSEMIDE [Suspect]
     Active Substance: TORSEMIDE
     Dosage: 1.2 DF, QD
     Route: 065
  7. HYDROXYZINE [Suspect]
     Active Substance: HYDROXYZINE HYDROCHLORIDE
     Indication: Product used for unknown indication
     Dosage: 25 MG, QD (1 TABLET IN THE EVENING)
     Route: 065
  8. HYDROXYZINE [Suspect]
     Active Substance: HYDROXYZINE HYDROCHLORIDE
     Dosage: 1 DF, QD (IN THE MORNING)
     Route: 065
  9. WARFARIN SODIUM [Suspect]
     Active Substance: WARFARIN SODIUM
     Indication: Product used for unknown indication
     Dosage: 5 MG, QD (2.5 TABLETS ON THE 1ST DAY, 2.5 TAB ON 1ST DAY)
     Route: 048
  10. WARFARIN SODIUM [Suspect]
     Active Substance: WARFARIN SODIUM
     Dosage: 3 DF, QD (3 TAB ON DAY 3)5 MG, QD (2.5 TABLETS ON 1ST DAY, 2.5 TABLETS ON 2ND, 3 TABLETS ON 3)
     Route: 048
  11. POTASSIUM [Suspect]
     Active Substance: POTASSIUM
     Indication: Product used for unknown indication
     Dosage: 10 MEQ, BID (1 TABLET, 20 MEQ DAILY)
     Route: 065
  12. POTASSIUM [Suspect]
     Active Substance: POTASSIUM
     Dosage: 2 DF, QD
     Route: 065

REACTIONS (7)
  - Atrial fibrillation [Recovering/Resolving]
  - Cardiac failure [Unknown]
  - Exercise tolerance decreased [Unknown]
  - Dyspnoea exertional [Unknown]
  - Cardiac failure chronic [Recovering/Resolving]
  - Drug ineffective [Unknown]
  - Disease progression [Unknown]
